FAERS Safety Report 10206450 (Version 1)
Quarter: 2014Q2

REPORT INFORMATION
  Report Type: Spontaneous
  Country: US (occurrence: None)
  Receive Date: 20140527
  Receipt Date: 20140527
  Transmission Date: 20141212
  Serious: Yes (Life-Threatening, Hospitalization, Disabling, Congenital Anomaly)
  Sender: FDA-Public Use
  Company Number: None

PATIENT
  Age: 2 Month
  Sex: Male
  Weight: 1.59 kg

DRUGS (1)
  1. LEXAPRO [Suspect]
     Indication: DEPRESSION

REACTIONS (4)
  - Maternal drugs affecting foetus [None]
  - Premature baby [None]
  - Pulmonary arterial hypertension [None]
  - Ventricular septal defect [None]
